FAERS Safety Report 5495629-6 (Version None)
Quarter: 2007Q4

REPORT INFORMATION
  Report Type: 
  Country: None (occurrence: None)
  Receive Date: 20071025
  Receipt Date: 20071015
  Transmission Date: 20080405
  Serious: Yes (Other)
  Sender: FDA-Public Use
  Company Number: US-JNJFOC-20071004294

PATIENT
  Sex: Female
  Weight: 74.84 kg

DRUGS (6)
  1. DURAGESIC-100 [Suspect]
     Indication: BACK PAIN
     Dosage: 100UG PATCH + 75UG PATCH
     Route: 062
  2. RESTORIL [Concomitant]
     Indication: SLEEP DISORDER
     Route: 048
  3. ALLEGRA D 24 HOUR [Concomitant]
     Indication: SEASONAL ALLERGY
     Route: 048
  4. FLONASE [Concomitant]
     Indication: SINUSITIS
     Route: 045
  5. IBUPROFEN [Concomitant]
     Indication: ARTHRITIS
     Route: 065
  6. DILANTIN [Concomitant]
     Indication: CONVULSION
     Route: 048

REACTIONS (12)
  - BREAKTHROUGH PAIN [None]
  - CONVULSION [None]
  - DEVICE LEAKAGE [None]
  - INCORRECT DRUG ADMINISTRATION DURATION [None]
  - MIGRAINE [None]
  - MUSCLE SPASMS [None]
  - NEURALGIA [None]
  - PAIN [None]
  - PALPITATIONS [None]
  - PHARMACEUTICAL PRODUCT COMPLAINT [None]
  - TOOTH ABSCESS [None]
  - TREMOR [None]
